FAERS Safety Report 5905359-1 (Version None)
Quarter: 2008Q4

REPORT INFORMATION
  Report Type: 
  Country: None (occurrence: None)
  Receive Date: 20081001
  Receipt Date: 20080919
  Transmission Date: 20090506
  Serious: Yes (Other)
  Sender: FDA-Public Use
  Company Number: US-PFIZER INC-2008078324

PATIENT
  Sex: Female
  Weight: 67 kg

DRUGS (4)
  1. CHANTIX [Suspect]
     Indication: SMOKING CESSATION THERAPY
     Dates: start: 20080801
  2. CLONAZEPAM [Concomitant]
     Indication: BIPOLAR DISORDER
  3. SEROQUEL [Concomitant]
     Indication: BIPOLAR DISORDER
  4. DRUG, UNSPECIFIED [Concomitant]
     Indication: BIPOLAR DISORDER

REACTIONS (2)
  - APATHY [None]
  - FEELING ABNORMAL [None]
